FAERS Safety Report 15051384 (Version 1)
Quarter: 2018Q3

REPORT INFORMATION
  Report Type: Spontaneous
  Country: ZA (occurrence: ZA)
  Receive Date: 20180622
  Receipt Date: 20180622
  Transmission Date: 20181010
  Serious: Yes (Hospitalization)
  Sender: FDA-Public Use
  Company Number: ZA-DRREDDYS-SAF/SAF/18/0101080

PATIENT
  Sex: Female

DRUGS (9)
  1. ADCO?MIRTERON [Suspect]
     Active Substance: MIRTAZAPINE
     Indication: DEPRESSION
     Route: 048
  2. OXPOLA [Suspect]
     Active Substance: PRAMIPEXOLE DIHYDROCHLORIDE
     Indication: PARKINSON^S DISEASE
     Route: 048
  3. DORMICUM (NITRAZEPAM) [Suspect]
     Active Substance: NITRAZEPAM
     Indication: INSOMNIA
     Route: 048
  4. DOPAQUEL [Suspect]
     Active Substance: QUETIAPINE
     Route: 048
  5. STILPANE (ACETAMINOPHEN\CODEINE PHOSPHATE\MEPROBAMATE) [Suspect]
     Active Substance: ACETAMINOPHEN\CODEINE PHOSPHATE\MEPROBAMATE
     Indication: PAIN
     Route: 048
  6. MYLAN ALPRAZOLAM [Suspect]
     Active Substance: ALPRAZOLAM
     Indication: STRESS
     Route: 048
  7. YELATE [Suspect]
     Active Substance: DULOXETINE HYDROCHLORIDE
     Indication: DEPRESSION
     Route: 048
  8. DOPAQUEL [Suspect]
     Active Substance: QUETIAPINE
     Indication: DEPRESSION
     Route: 048
  9. ETOMINE [Suspect]
     Active Substance: CLOTHIAPINE
     Indication: DEPRESSION
     Route: 048

REACTIONS (1)
  - Hospitalisation [Unknown]
